FAERS Safety Report 25023500 (Version 1)
Quarter: 2025Q1

REPORT INFORMATION
  Report Type: Spontaneous
  Country: FR (occurrence: FR)
  Receive Date: 20250228
  Receipt Date: 20250228
  Transmission Date: 20250408
  Serious: Yes (Hospitalization, Other)
  Sender: RECKITT BENCKISER
  Company Number: None

PATIENT

DRUGS (1)
  1. SUBUTEX [Suspect]
     Active Substance: BUPRENORPHINE HYDROCHLORIDE
     Indication: Product used for unknown indication
     Dosage: 16 MILLIGRAM, QD
     Route: 060

REACTIONS (4)
  - Hallucination [Recovering/Resolving]
  - General physical health deterioration [Recovering/Resolving]
  - Weight loss poor [Recovering/Resolving]
  - Delirium [Recovering/Resolving]
